FAERS Safety Report 6405800-4 (Version None)
Quarter: 2009Q4

REPORT INFORMATION
  Report Type: 
  Country: None (occurrence: None)
  Receive Date: 20091014
  Receipt Date: 20090930
  Transmission Date: 20100525
  Serious: Yes (Death, Hospitalization)
  Sender: FDA-Public Use
  Company Number: 2009AC000059

PATIENT
  Age: 62 Year
  Sex: Male
  Weight: 92.0802 kg

DRUGS (27)
  1. DIGOXIN [Suspect]
     Dosage: 0125 MG;TIW;PO
     Route: 048
  2. AMBIEN [Concomitant]
  3. ASPIRIN [Concomitant]
  4. GABAPENTIN [Concomitant]
  5. NITROGLYCERIN [Concomitant]
  6. CLOTRIMAZOLE [Concomitant]
  7. LISINOPRIL [Concomitant]
  8. PREDNISONE TAB [Concomitant]
  9. NEXIUM [Concomitant]
  10. HYDROCHLOROQUINE [Concomitant]
  11. FUROSEMIDE [Concomitant]
  12. PROVENTIL-HFA [Concomitant]
  13. ALPRAZOLAM [Concomitant]
  14. BONIVA [Concomitant]
  15. FLUCONAZOLE [Concomitant]
  16. AMOXICILLIN [Concomitant]
  17. TEMAZEPAM [Concomitant]
  18. OMEPRAZOLE [Concomitant]
  19. ZOLPIDEM [Concomitant]
  20. HYOSCYAMINE [Concomitant]
  21. CARVEDILOL [Concomitant]
  22. COREG [Concomitant]
  23. VANCOMYCIN [Concomitant]
  24. ZOSYN [Concomitant]
  25. OXYGEN [Concomitant]
  26. BIAXIN [Concomitant]
  27. VICODIN [Concomitant]

REACTIONS (36)
  - ABDOMINAL PAIN [None]
  - ABDOMINAL PAIN UPPER [None]
  - ANAEMIA [None]
  - ANAL SKIN TAGS [None]
  - ARTHRALGIA [None]
  - ATELECTASIS [None]
  - BONE PAIN [None]
  - BUNDLE BRANCH BLOCK [None]
  - CARDIAC FAILURE [None]
  - CARDIOMEGALY [None]
  - CARDIOMYOPATHY [None]
  - CHEST PAIN [None]
  - COLITIS [None]
  - COLONIC POLYP [None]
  - CORONARY ARTERY DISEASE [None]
  - DIARRHOEA [None]
  - DIVERTICULUM [None]
  - DIZZINESS [None]
  - DYSPNOEA [None]
  - ECONOMIC PROBLEM [None]
  - FEBRILE NEUTROPENIA [None]
  - HAEMORRHOIDS [None]
  - HYPOAESTHESIA [None]
  - HYPOTENSION [None]
  - INFECTION [None]
  - INJURY [None]
  - MULTIPLE MYELOMA [None]
  - MUSCULOSKELETAL PAIN [None]
  - PROTEIN TOTAL INCREASED [None]
  - PYREXIA [None]
  - RECTAL HAEMORRHAGE [None]
  - SEPSIS [None]
  - SURGERY [None]
  - TREATMENT NONCOMPLIANCE [None]
  - WEIGHT DECREASED [None]
  - WEIGHT INCREASED [None]
